FAERS Safety Report 7538101-1 (Version None)
Quarter: 2011Q2

REPORT INFORMATION
  Report Type: 
  Country: None (occurrence: None)
  Receive Date: 20110609
  Receipt Date: 20010528
  Transmission Date: 20111010
  Serious: Yes (Life-Threatening)
  Sender: FDA-Public Use
  Company Number: PHBS2001CA05035

PATIENT
  Sex: Male

DRUGS (3)
  1. CLOZAPINE [Suspect]
     Indication: SCHIZOPHRENIA
     Dosage: 250+300 MG, QD
     Route: 048
     Dates: start: 19990329, end: 20010515
  2. HALDOL [Concomitant]
  3. ASPIRIN [Concomitant]

REACTIONS (1)
  - LUNG NEOPLASM MALIGNANT [None]
